FAERS Safety Report 18311267 (Version 1)
Quarter: 2020Q3

REPORT INFORMATION
  Report Type: Spontaneous
  Country: US (occurrence: US)
  Receive Date: 20200925
  Receipt Date: 20200925
  Transmission Date: 20201103
  Serious: No
  Sender: FDA-Public Use
  Company Number: US-GILEAD-2020-0496374

PATIENT
  Sex: Male

DRUGS (2)
  1. VEMLIDY [Suspect]
     Active Substance: TENOFOVIR ALAFENAMIDE FUMARATE
     Indication: CHRONIC HEPATITIS B
     Dosage: TAKE 1 TABLET BY MOUTH ONCE DAILY.
     Route: 065
  2. PROTEIN [Concomitant]
     Active Substance: PROTEIN

REACTIONS (1)
  - Product dose omission issue [Recovered/Resolved]
